FAERS Safety Report 10228084 (Version 1)
Quarter: 2014Q2

REPORT INFORMATION
  Report Type: Spontaneous
  Country: US (occurrence: US)
  Receive Date: 20140610
  Receipt Date: 20140610
  Transmission Date: 20141212
  Serious: Yes (Other)
  Sender: FDA-Public Use
  Company Number: US-BAYER-2014-081612

PATIENT
  Age: 25 Year
  Sex: Female

DRUGS (9)
  1. YAZ [Suspect]
  2. YASMIN [Suspect]
  3. OCELLA [Suspect]
  4. PROZAC [Concomitant]
  5. ATIVAN [Concomitant]
  6. TRAZODONE [Concomitant]
  7. TOPIRAMATE [Concomitant]
  8. NAPROXEN [Concomitant]
  9. PERCOCET [Concomitant]
     Indication: PAIN

REACTIONS (2)
  - Pulmonary embolism [None]
  - Cerebrovascular accident [None]
